FAERS Safety Report 22035524 (Version 2)
Quarter: 2023Q2

REPORT INFORMATION
  Report Type: Report from Study
  Country: US (occurrence: US)
  Receive Date: 20230224
  Receipt Date: 20230406
  Transmission Date: 20230722
  Serious: Yes (Death, Other)
  Sender: FDA-Public Use
  Company Number: US-ALLERGAN-2302497US

PATIENT
  Sex: Female
  Weight: 112.94 kg

DRUGS (19)
  1. CARIPRAZINE HYDROCHLORIDE [Suspect]
     Active Substance: CARIPRAZINE HYDROCHLORIDE
     Indication: Bipolar I disorder
     Dosage: 1.5 MG, QD
     Route: 048
     Dates: start: 20221111
  2. MUCINEX [Concomitant]
     Active Substance: GUAIFENESIN
     Indication: Cough
     Dosage: 1200 MG, BID
     Route: 048
     Dates: start: 20201016
  3. PROAIR HFA [Concomitant]
     Active Substance: ALBUTEROL SULFATE
     Indication: Product used for unknown indication
     Dosage: 1 PUFF 4 TIMES DAILY AS NEEDED
     Dates: start: 20210816
  4. PRAVASTATIN [Concomitant]
     Active Substance: PRAVASTATIN
     Indication: Hypercholesterolaemia
     Dosage: 40 MG, QPM
     Route: 048
     Dates: start: 20210823
  5. ASPIRIN [Concomitant]
     Active Substance: ASPIRIN
     Indication: Hypercholesterolaemia
     Dosage: 81 MG, QD
     Route: 048
     Dates: start: 20210823
  6. LEVOTHYROXINE [Concomitant]
     Active Substance: LEVOTHYROXINE
     Indication: Product used for unknown indication
     Dosage: 100 ?G, QD
     Route: 048
     Dates: start: 20220302
  7. JARDIANCE [Concomitant]
     Active Substance: EMPAGLIFLOZIN
     Indication: Product used for unknown indication
     Dosage: 25 MG, QD
     Route: 048
     Dates: start: 20220520
  8. MIRALAX [Concomitant]
     Active Substance: POLYETHYLENE GLYCOL 3350
     Indication: Constipation
     Dosage: ACTUAL: 1 CAPFUL DAILY AS NEEDED
     Route: 048
     Dates: start: 20220714
  9. GLIPIZIDE [Concomitant]
     Active Substance: GLIPIZIDE
     Indication: Product used for unknown indication
     Dosage: 2.5 MG, QD
     Route: 048
     Dates: start: 20220901
  10. ALPRAZOLAM [Concomitant]
     Active Substance: ALPRAZOLAM
     Indication: Anxiety
     Dosage: 0.5 MG, PRN, 3 TIMES DAILY, AS NEEDED
     Route: 048
     Dates: start: 20221111
  11. ALPRAZOLAM [Concomitant]
     Active Substance: ALPRAZOLAM
     Indication: Depression
  12. ALLOPURINOL [Concomitant]
     Active Substance: ALLOPURINOL
     Indication: Gouty arthritis
     Dosage: 100 MG, QD
     Route: 048
     Dates: start: 20221111
  13. ETODOLAC [Concomitant]
     Active Substance: ETODOLAC
     Indication: Intervertebral disc degeneration
     Dosage: 600 MG, QD
     Route: 048
     Dates: start: 20221111
  14. KLOXXADO [Concomitant]
     Active Substance: NALOXONE HYDROCHLORIDE
     Indication: Pain
     Dosage: 8MG/ ACTUATION, 1 SPAY AS NEEDED, EACH, PRN
     Route: 045
     Dates: start: 20221106
  15. DICLOFENAC [Concomitant]
     Active Substance: DICLOFENAC
     Indication: Arthropathy
     Dosage: 1 DF, QID
     Route: 003
     Dates: start: 20220901
  16. FLUTICASONE PROPIONATE [Concomitant]
     Active Substance: FLUTICASONE PROPIONATE
     Dosage: 2 SPAY AT BEDTIME, 1 UNSPECIFIED
     Route: 045
     Dates: start: 20220901
  17. NARCAN [Concomitant]
     Active Substance: NALOXONE HYDROCHLORIDE
     Indication: Pain
     Dosage: 4MG/ ACTUATION, 1 SPRAY AS NEEDED
     Dates: start: 20220321
  18. LISINOPRIL [Concomitant]
     Active Substance: LISINOPRIL
     Dosage: 2.5 MG, QD
     Route: 048
     Dates: start: 20220302
  19. ALBUTEROL SULFATE [Concomitant]
     Active Substance: ALBUTEROL SULFATE
     Dosage: 1 TO 2 PUFFS EVERY 4 TO 6 HOURS AS NEEDED , 240 EACH
     Dates: start: 20220103

REACTIONS (1)
  - Seizure [Fatal]

NARRATIVE: CASE EVENT DATE: 20221201
